FAERS Safety Report 8573574 (Version 3)
Quarter: 2014Q1

REPORT INFORMATION
  Report Type: Report from Study
  Country: CA (occurrence: CA)
  Receive Date: 20120522
  Receipt Date: 20140117
  Transmission Date: 20141002
  Serious: Yes (Hospitalization)
  Sender: FDA-Public Use
  Company Number: CA-ELI_LILLY_AND_COMPANY-CA201205004710

PATIENT
  Sex: Female
  Weight: 68.03 kg

DRUGS (18)
  1. TERIPARATIDE [Suspect]
     Indication: OSTEOPOROSIS
     Dosage: 20 UG, QD
     Route: 058
     Dates: start: 20120405, end: 20120503
  2. TERIPARATIDE [Suspect]
     Dosage: 20 UG, QD
     Route: 058
     Dates: start: 20120508
  3. TERIPARATIDE [Suspect]
     Dosage: 20 UG, QD
     Route: 058
     Dates: start: 20130405, end: 20130626
  4. TERIPARATIDE [Suspect]
     Dosage: 20 UG, QD
     Route: 058
     Dates: start: 20130704, end: 20131225
  5. PREDNISONE [Concomitant]
     Dosage: 4 MG, UNKNOWN
  6. PREDNISONE [Concomitant]
     Dosage: 5 MG, UNKNOWN
  7. TIAZAC                             /00489702/ [Concomitant]
  8. METOPROLOL [Concomitant]
  9. LIPITOR [Concomitant]
  10. METFORMIN [Concomitant]
  11. INSULIN [Concomitant]
  12. MAGNESIUM [Concomitant]
  13. VITAMIN B12 [Concomitant]
  14. FOLIC ACID [Concomitant]
  15. VITAMIN D NOS [Concomitant]
  16. OMEPRAZOLE [Concomitant]
  17. ACETAMINOPHEN [Concomitant]
  18. SUCRALFATE [Concomitant]
     Dosage: UNK, UNKNOWN
     Route: 065

REACTIONS (7)
  - Crohn^s disease [Recovering/Resolving]
  - Inflammatory bowel disease [Recovering/Resolving]
  - Dehydration [Recovering/Resolving]
  - Duodenitis [Recovering/Resolving]
  - Lactose intolerance [Recovering/Resolving]
  - Oesophageal ulcer [Not Recovered/Not Resolved]
  - Gastric ulcer [Not Recovered/Not Resolved]
